FAERS Safety Report 12578391 (Version 1)
Quarter: 2016Q3

REPORT INFORMATION
  Report Type: Spontaneous
  Country: US (occurrence: None)
  Receive Date: 20160720
  Receipt Date: 20160720
  Transmission Date: 20161109
  Serious: No
  Sender: FDA-Public Use
  Company Number: None

PATIENT
  Age: 46 Year
  Sex: Female

DRUGS (1)
  1. SPRYCEL [Suspect]
     Active Substance: DASATINIB

REACTIONS (5)
  - Nausea [None]
  - Bone pain [None]
  - Muscle spasms [None]
  - Fatigue [None]
  - Rash [None]

NARRATIVE: CASE EVENT DATE: 20160530
